FAERS Safety Report 4300381-3 (Version None)
Quarter: 2004Q1

REPORT INFORMATION
  Report Type: 
  Country: None (occurrence: None)
  Receive Date: 20040220
  Receipt Date: 20040206
  Transmission Date: 20041129
  Serious: Yes (Other)
  Sender: FDA-Public Use
  Company Number: ES-GLAXOSMITHKLINE-B0322567A

PATIENT
  Age: 32 Year
  Sex: Male

DRUGS (2)
  1. ZYNTABAC [Suspect]
     Indication: EX-SMOKER
     Route: 048
     Dates: start: 20030101, end: 20030101
  2. ALCOHOL [Suspect]
     Dates: start: 20031119

REACTIONS (3)
  - AGGRESSION [None]
  - ALCOHOL INTERACTION [None]
  - DISORIENTATION [None]
